FAERS Safety Report 21992512 (Version 1)
Quarter: 2023Q1

REPORT INFORMATION
  Report Type: Spontaneous
  Country: JP (occurrence: JP)
  Receive Date: 20230215
  Receipt Date: 20230215
  Transmission Date: 20230418
  Serious: Yes (Hospitalization, Other)
  Sender: FDA-Public Use
  Company Number: JP-INGENUS PHARMACEUTICALS, LLC-2023INF000005

PATIENT
  Age: 54 Year
  Sex: Female
  Weight: 55.2 kg

DRUGS (6)
  1. CYCLOPHOSPHAMIDE [Suspect]
     Active Substance: CYCLOPHOSPHAMIDE
     Indication: Chemotherapy
     Dosage: 912 MILLIGRAM  (600 MG/M2)
     Route: 042
  2. DOXORUBICIN [Suspect]
     Active Substance: DOXORUBICIN
     Indication: Chemotherapy
     Dosage: 91.2 MILLIGRAM (60 MG/M2)
     Route: 042
  3. FAMOTIDINE [Concomitant]
     Active Substance: FAMOTIDINE
     Indication: Prophylaxis against gastrointestinal ulcer
     Dosage: 20 MILLIGRAM, QD
     Route: 042
  4. FAMOTIDINE [Concomitant]
     Active Substance: FAMOTIDINE
     Indication: Infection prophylaxis
  5. Tazobactam piperacillin hydrate [Concomitant]
     Indication: Prophylaxis against gastrointestinal ulcer
     Dosage: 2.25 MILLIGRAM EVERY 8 HOURS
     Route: 065
  6. Tazobactam piperacillin hydrate [Concomitant]
     Indication: Infection prophylaxis

REACTIONS (3)
  - Type 1 diabetes mellitus [Recovering/Resolving]
  - Diabetic ketoacidosis [Recovering/Resolving]
  - Product use in unapproved indication [Unknown]
